FAERS Safety Report 17080129 (Version 1)
Quarter: 2019Q4

REPORT INFORMATION
  Report Type: Spontaneous
  Country: IR (occurrence: IR)
  Receive Date: 20191127
  Receipt Date: 20191127
  Transmission Date: 20200122
  Serious: Yes (Hospitalization, Other)
  Sender: FDA-Public Use
  Company Number: IR-ALKEM LABORATORIES LIMITED-IR-ALKEM-2019-09851

PATIENT
  Age: 41 Year
  Sex: Female

DRUGS (3)
  1. MYCOPHENOLATE MOFETIL. [Suspect]
     Active Substance: MYCOPHENOLATE MOFETIL
     Indication: IMMUNOSUPPRESSANT DRUG THERAPY
     Dosage: UNK
     Route: 065
     Dates: start: 2016
  2. MYCOPHENOLATE MOFETIL. [Suspect]
     Active Substance: MYCOPHENOLATE MOFETIL
     Dosage: REDUCED DOSE
     Route: 065
  3. TACROLIMUS. [Suspect]
     Active Substance: TACROLIMUS
     Indication: IMMUNOSUPPRESSANT DRUG THERAPY
     Dosage: UNK
     Route: 065
     Dates: start: 2016

REACTIONS (5)
  - Aphasia [Recovering/Resolving]
  - Progressive multifocal leukoencephalopathy [Recovering/Resolving]
  - JC virus infection [Recovering/Resolving]
  - Paresis [Recovering/Resolving]
  - Infection reactivation [Recovering/Resolving]

NARRATIVE: CASE EVENT DATE: 2016
